FAERS Safety Report 20193352 (Version 1)
Quarter: 2021Q4

REPORT INFORMATION
  Report Type: Spontaneous
  Country: GB (occurrence: GB)
  Receive Date: 20211216
  Receipt Date: 20211216
  Transmission Date: 20220303
  Serious: Yes (Death, Hospitalization, Disabling, Other)
  Sender: FDA-Public Use
  Company Number: GB-NOVARTISPH-NVSC2021GB284262

PATIENT
  Age: 76 Year
  Sex: Male

DRUGS (42)
  1. CEFUROXIME [Suspect]
     Active Substance: CEFUROXIME
     Indication: Product used for unknown indication
     Dosage: UNK
     Route: 065
     Dates: start: 20180131
  2. CEFUROXIME [Suspect]
     Active Substance: CEFUROXIME
     Dosage: UNK
     Route: 065
  3. BISOPROLOL [Suspect]
     Active Substance: BISOPROLOL
     Indication: Product used for unknown indication
     Dosage: UNK
     Route: 065
  4. CLARITHROMYCIN [Suspect]
     Active Substance: CLARITHROMYCIN
     Indication: Mediastinitis
     Dosage: 500 MG, BID
     Route: 042
     Dates: start: 20180127, end: 20180131
  5. CLARITHROMYCIN [Suspect]
     Active Substance: CLARITHROMYCIN
     Indication: Pneumonia
     Dosage: UNK
     Route: 065
  6. CLARITHROMYCIN [Suspect]
     Active Substance: CLARITHROMYCIN
     Indication: Lower respiratory tract infection
     Dosage: UNK
     Route: 065
  7. TACROLIMUS [Suspect]
     Active Substance: TACROLIMUS
     Indication: Prophylaxis against transplant rejection
     Dosage: 2 MG, BID
     Route: 065
     Dates: start: 20100127, end: 20180128
  8. TACROLIMUS [Suspect]
     Active Substance: TACROLIMUS
     Indication: Renal transplant
     Dosage: 1.5 MG, BID
     Route: 065
     Dates: start: 20180127
  9. TACROLIMUS [Suspect]
     Active Substance: TACROLIMUS
     Dosage: 1.5 MG, BID
     Route: 065
     Dates: end: 20180130
  10. TACROLIMUS [Suspect]
     Active Substance: TACROLIMUS
     Dosage: 15 MG, BID
     Route: 048
  11. ENVARSUS XR [Suspect]
     Active Substance: TACROLIMUS
     Indication: Renal transplant
     Dosage: 27 MG
     Route: 065
  12. ENVARSUS XR [Suspect]
     Active Substance: TACROLIMUS
     Indication: Prophylaxis against transplant rejection
     Dosage: 3 MG, QD
     Route: 048
     Dates: start: 20180127, end: 20180131
  13. ALFACALCIDOL [Concomitant]
     Active Substance: ALFACALCIDOL
     Indication: Product used for unknown indication
     Dosage: 500 NG, QD
     Route: 048
  14. ALLOPURINOL [Concomitant]
     Active Substance: ALLOPURINOL
     Indication: Product used for unknown indication
     Dosage: 100 MG, QD
     Route: 048
  15. DEXTROSE [Concomitant]
     Active Substance: DEXTROSE
     Indication: Product used for unknown indication
     Dosage: UNK
     Route: 065
     Dates: start: 20180130
  16. FUROSEMIDE [Concomitant]
     Active Substance: FUROSEMIDE
     Indication: Product used for unknown indication
     Dosage: 80 MG
     Route: 048
     Dates: end: 20180130
  17. FUROSEMIDE [Concomitant]
     Active Substance: FUROSEMIDE
     Dosage: 40 MG
     Route: 048
  18. FUROSEMIDE [Concomitant]
     Active Substance: FUROSEMIDE
     Dosage: 120 MG, QD (80 MG MORNING, 40 MG 12PM)
     Route: 048
  19. FUROSEMIDE [Concomitant]
     Active Substance: FUROSEMIDE
     Dosage: 80 MG, QD
     Route: 048
     Dates: end: 20180130
  20. PREDNISOLONE [Concomitant]
     Active Substance: PREDNISOLONE
     Indication: Product used for unknown indication
     Dosage: 10 MG(INCREASE PREDNISOLONE TO 10 MG FOR 5 DAYS;)
     Route: 065
     Dates: start: 20180127
  21. PREDNISOLONE [Concomitant]
     Active Substance: PREDNISOLONE
     Dosage: 5 MG, QMO
     Route: 048
  22. PREDNISOLONE [Concomitant]
     Active Substance: PREDNISOLONE
     Dosage: 5 MG, QD
     Route: 048
  23. ALBUTEROL [Concomitant]
     Active Substance: ALBUTEROL
     Indication: Product used for unknown indication
     Dosage: UNK
     Route: 065
  24. CHOLECALCIFEROL [Concomitant]
     Active Substance: CHOLECALCIFEROL
     Indication: Product used for unknown indication
     Dosage: 20 NG, QD
     Route: 048
  25. CHOLECALCIFEROL [Concomitant]
     Active Substance: CHOLECALCIFEROL
     Dosage: 20 NG, QMO
     Route: 048
  26. BETAHISTINE [Concomitant]
     Active Substance: BETAHISTINE
     Indication: Product used for unknown indication
     Dosage: 8 MG, QD, MORNING
     Route: 048
  27. BETAHISTINE [Concomitant]
     Active Substance: BETAHISTINE
     Dosage: 8 MG, QMO
     Route: 048
  28. DOXYCYCLINE [Concomitant]
     Active Substance: DOXYCYCLINE
     Indication: Product used for unknown indication
     Dosage: UNK
     Route: 065
  29. EPLERENONE [Concomitant]
     Active Substance: EPLERENONE
     Indication: Product used for unknown indication
     Dosage: 25 MG, QD
     Route: 048
     Dates: end: 20180130
  30. EPLERENONE [Concomitant]
     Active Substance: EPLERENONE
     Dosage: 25 MG, QMO
     Route: 048
  31. EPLERENONE [Concomitant]
     Active Substance: EPLERENONE
     Dosage: 25 MG
     Route: 048
     Dates: end: 20180130
  32. GLICLAZIDE [Concomitant]
     Active Substance: GLICLAZIDE
     Indication: Product used for unknown indication
     Dosage: 40 MG, QD
     Route: 048
  33. GLICLAZIDE [Concomitant]
     Active Substance: GLICLAZIDE
     Dosage: 40 MG, QMO
     Route: 048
  34. GLUCAGON [Concomitant]
     Active Substance: GLUCAGON
     Indication: Product used for unknown indication
     Dosage: UNK
     Route: 030
     Dates: start: 20180130
  35. NITROGLYCERIN [Concomitant]
     Active Substance: NITROGLYCERIN
     Indication: Product used for unknown indication
     Dosage: UNK
     Route: 065
  36. HYDROCORTISONE [Concomitant]
     Active Substance: HYDROCORTISONE
     Indication: Product used for unknown indication
     Dosage: 50 MG, TID
     Route: 042
     Dates: end: 20180201
  37. HYDROCORTISONE [Concomitant]
     Active Substance: HYDROCORTISONE
     Dosage: 150 MG, TID
     Route: 042
     Dates: start: 20180201
  38. SENNA [Concomitant]
     Active Substance: SENNA LEAF\SENNOSIDES\SENNOSIDES A AND B
     Indication: Product used for unknown indication
     Dosage: 15 MG, QD
     Route: 048
  39. DEXTROSE [Concomitant]
     Active Substance: DEXTROSE
     Indication: Product used for unknown indication
     Dosage: UNK
     Route: 065
     Dates: start: 20180130
  40. OMEPRAZOLE [Concomitant]
     Active Substance: OMEPRAZOLE
     Indication: Product used for unknown indication
     Dosage: 20 MG, QD
     Route: 048
  41. OMEPRAZOLE [Concomitant]
     Active Substance: OMEPRAZOLE
     Dosage: 20 MG, QMO
     Route: 048
  42. SENNOSIDES A AND B [Concomitant]
     Active Substance: SENNOSIDES A AND B
     Indication: Product used for unknown indication
     Dosage: UNK
     Route: 065

REACTIONS (34)
  - Cardiac failure congestive [Fatal]
  - Myocardial ischaemia [Fatal]
  - Oesophageal carcinoma [Fatal]
  - Acute kidney injury [Fatal]
  - Immunosuppressant drug level increased [Fatal]
  - Drug level increased [Fatal]
  - Oesophageal perforation [Fatal]
  - Sepsis [Fatal]
  - Transplant failure [Fatal]
  - Pneumonia [Fatal]
  - Haemoptysis [Fatal]
  - Soft tissue mass [Fatal]
  - Lung consolidation [Fatal]
  - Inflammatory marker increased [Fatal]
  - Cardiomegaly [Fatal]
  - Rales [Fatal]
  - Labelled drug-drug interaction medication error [Fatal]
  - Toxicity to various agents [Fatal]
  - Pyrexia [Fatal]
  - Hypoglycaemia [Fatal]
  - Lower respiratory tract infection [Fatal]
  - Productive cough [Fatal]
  - Dysphagia [Fatal]
  - Superinfection [Fatal]
  - Ascites [Fatal]
  - Rash [Fatal]
  - Pleural effusion [Fatal]
  - Malaise [Fatal]
  - Multimorbidity [Fatal]
  - Renal impairment [Fatal]
  - Cough [Fatal]
  - Swelling [Fatal]
  - Oesophageal perforation [Fatal]
  - Drug interaction [Fatal]

NARRATIVE: CASE EVENT DATE: 20180118
